FAERS Safety Report 5062133-9 (Version None)
Quarter: 2006Q3

REPORT INFORMATION
  Report Type: 
  Country: None (occurrence: None)
  Receive Date: 20060721
  Receipt Date: 20060713
  Transmission Date: 20061208
  Serious: Yes (Hospitalization)
  Sender: FDA-Public Use
  Company Number: US-2006-001963

PATIENT
  Age: 22 Year
  Sex: Female

DRUGS (2)
  1. MIRENA [Suspect]
     Dosage: 20 UG/DAY, CONT, INTRA-UTERINE
     Route: 015
     Dates: start: 20051107, end: 20060211
  2. DOXYCYCLINE HCL [Concomitant]

REACTIONS (13)
  - ABASIA [None]
  - ADNEXA UTERI MASS [None]
  - DEHYDRATION [None]
  - DIZZINESS [None]
  - GASTROENTERITIS [None]
  - INFLUENZA [None]
  - IUCD COMPLICATION [None]
  - OVARIAN CYST [None]
  - PELVIC ABSCESS [None]
  - PELVIC INFLAMMATORY DISEASE [None]
  - SEPSIS [None]
  - TREATMENT NONCOMPLIANCE [None]
  - TUBO-OVARIAN ABSCESS [None]
